FAERS Safety Report 10592781 (Version 2)
Quarter: 2017Q2

REPORT INFORMATION
  Report Type: Spontaneous
  Country: FR (occurrence: FR)
  Receive Date: 20141119
  Receipt Date: 20170427
  Transmission Date: 20170829
  Serious: Yes (Life-Threatening, Other)
  Sender: FDA-Public Use
  Company Number: FR-PFIZER INC-2014314811

PATIENT
  Age: 50 Year
  Sex: Female

DRUGS (6)
  1. EMEND [Concomitant]
     Active Substance: APREPITANT
     Dosage: UNK
     Route: 048
  2. CAMPTO [Suspect]
     Active Substance: IRINOTECAN
     Indication: RECTOSIGMOID CANCER METASTATIC
     Dosage: CYCLE 5
     Route: 042
  3. ZALTRAP [Concomitant]
     Active Substance: ZIV-AFLIBERCEPT
     Indication: RECTOSIGMOID CANCER METASTATIC
     Dosage: UNK
     Route: 042
  4. ZOPHREN [Concomitant]
     Active Substance: ONDANSETRON
     Dosage: UNK
     Route: 048
  5. CALCIUM FOLINATE [Concomitant]
     Active Substance: LEUCOVORIN CALCIUM
     Indication: RECTOSIGMOID CANCER METASTATIC
     Dosage: UNK
  6. FLUOROURACIL. [Concomitant]
     Active Substance: FLUOROURACIL
     Indication: RECTOSIGMOID CANCER METASTATIC
     Dosage: UNK

REACTIONS (3)
  - Chest pain [Recovered/Resolved]
  - Dyspnoea [Recovered/Resolved]
  - Laryngospasm [Recovered/Resolved]

NARRATIVE: CASE EVENT DATE: 20140903
